FAERS Safety Report 9458963 (Version 1)
Quarter: 2013Q3

REPORT INFORMATION
  Report Type: Spontaneous
  Country: US (occurrence: US)
  Receive Date: 20130814
  Receipt Date: 20130814
  Transmission Date: 20140515
  Serious: No
  Sender: FDA-Public Use
  Company Number: US-TARO-2013P1002111

PATIENT
  Age: 61 Year
  Sex: Female
  Weight: 63.5 kg

DRUGS (1)
  1. DESONIDE CREAM USP 0.05% [Suspect]
     Route: 061
     Dates: start: 2012, end: 201212

REACTIONS (4)
  - Fungal infection [Recovered/Resolved]
  - Seborrhoeic dermatitis [Recovered/Resolved]
  - Muscle twitching [Not Recovered/Not Resolved]
  - Muscle contracture [Not Recovered/Not Resolved]
